FAERS Safety Report 17022351 (Version 1)
Quarter: 2019Q4

REPORT INFORMATION
  Report Type: Spontaneous
  Country: FR (occurrence: FR)
  Receive Date: 20191112
  Receipt Date: 20191112
  Transmission Date: 20200122
  Serious: Yes (Hospitalization, Other)
  Sender: FDA-Public Use
  Company Number: FR-GLAXOSMITHKLINE-FR2019204373

PATIENT
  Age: 80 Year
  Sex: Female

DRUGS (3)
  1. TRUXIMA [Suspect]
     Active Substance: RITUXIMAB-ABBS
     Indication: LUNG DISORDER
     Dosage: 1 G, UNK 1 PER 15 HOURS
     Route: 041
     Dates: start: 20191018, end: 20191018
  2. CANCIDAS [Concomitant]
     Active Substance: CASPOFUNGIN ACETATE
     Indication: CANDIDA INFECTION
     Dosage: UNK
     Route: 065
     Dates: start: 20191002, end: 20191015
  3. WELLVONE [Suspect]
     Active Substance: ATOVAQUONE
     Indication: PNEUMOCYSTIS JIROVECII PNEUMONIA
     Dosage: 2 DF, QD 1 SPOON MORNING AND EVENING
     Route: 048
     Dates: start: 20190920, end: 20191028

REACTIONS (2)
  - Toxic skin eruption [Recovering/Resolving]
  - Eosinophilia [Recovering/Resolving]

NARRATIVE: CASE EVENT DATE: 20190930
